FAERS Safety Report 16133037 (Version 1)
Quarter: 2019Q2

REPORT INFORMATION
  Report Type: Spontaneous
  Country: US (occurrence: US)
  Receive Date: 20190328
  Receipt Date: 20190328
  Transmission Date: 20190711
  Serious: Yes (Hospitalization)
  Sender: FDA-Public Use
  Company Number: None

PATIENT
  Age: 58 Year
  Sex: Male

DRUGS (11)
  1. REBIF [Suspect]
     Active Substance: INTERFERON BETA-1A
     Indication: MULTIPLE SCLEROSIS
     Dosage: ?          OTHER FREQUENCY:3 TIMES A WEEK;?
     Route: 058
     Dates: start: 20160408
  2. FISH OIL CAP 1000MG [Concomitant]
  3. NIASPAN TAB 500MG ER [Concomitant]
  4. ASPIRIN CHW 81MG [Concomitant]
  5. BIOTIN TAB 1000MCG [Concomitant]
  6. MELATONIN CAP 10MG [Concomitant]
  7. ALFUZOSIN TAB 10MG ER [Concomitant]
  8. SIMVASTATIN TAB 10MG [Concomitant]
     Active Substance: SIMVASTATIN
  9. VIAGRA TAB 25MG [Concomitant]
  10. NALTREXONE TAB 50MG [Concomitant]
  11. VITAMIN D TAB 1000UNIT [Concomitant]

REACTIONS (2)
  - Therapy cessation [None]
  - Knee operation [None]

NARRATIVE: CASE EVENT DATE: 20190227
